FAERS Safety Report 8738572 (Version 12)
Quarter: 2013Q3

REPORT INFORMATION
  Report Type: Spontaneous
  Country: US (occurrence: US)
  Receive Date: 20120823
  Receipt Date: 20130813
  Transmission Date: 20140515
  Serious: Yes (Hospitalization, Other)
  Sender: FDA-Public Use
  Company Number: PHEH2007US016488

PATIENT
  Age: 65 Year
  Sex: Male
  Weight: 101.59 kg

DRUGS (59)
  1. ZOMETA [Suspect]
     Indication: PLASMA CELL MYELOMA
     Dosage: 4 MG, QMO
     Route: 042
     Dates: start: 20030423, end: 200608
  2. DECADRON [Suspect]
     Dosage: 40 MG, QD
     Route: 048
  3. 5 FLUORO URACIL [Suspect]
     Indication: SKIN LESION
  4. THALIDOMIDE [Concomitant]
     Dosage: 200 MG, QD
     Route: 048
  5. ALLOPURINOL [Concomitant]
     Dosage: 100 MG, QD
     Route: 048
  6. CELEBREX [Concomitant]
     Dosage: 200 MG, UNK
     Route: 048
  7. ALLEGRA [Concomitant]
     Indication: SEASONAL ALLERGY
     Dosage: 60 MG, BID
  8. INTERFERON [Concomitant]
     Indication: PLASMA CELL MYELOMA
  9. ACYCLOVIR [Concomitant]
     Dosage: 800 MG, BID
  10. DYAZIDE [Concomitant]
     Dosage: 37.5 MG, QD
  11. HYDROCHLOROTHIAZIDE [Concomitant]
     Dosage: 25 MG, QD
  12. GEMFIBROZIL [Concomitant]
     Indication: BLOOD TRIGLYCERIDES DECREASED
     Dosage: 600 MG, BID
  13. CHEMOTHERAPEUTICS NOS [Concomitant]
  14. RADIATION THERAPY [Concomitant]
  15. COZAAR [Concomitant]
  16. PAXIL [Concomitant]
  17. EPHEDRINE [Concomitant]
  18. XANAX [Concomitant]
  19. LIPITOR                                 /NET/ [Concomitant]
  20. LASIX [Concomitant]
     Indication: FLUID RETENTION
     Dosage: 20 MG, DAILY
  21. PIROXICAM [Concomitant]
     Indication: ARTHRALGIA
     Dosage: 20 MG, QD
  22. PAROXETINE [Concomitant]
     Indication: MOOD ALTERED
     Dosage: 5 MG, QD
  23. ASPIRIN ^BAYER^ [Concomitant]
     Indication: ANTICOAGULATION DRUG LEVEL
     Dosage: 325 MG, QD
  24. TOPROL XL [Concomitant]
     Indication: HYPERTENSION
  25. SIMVASTATIN [Concomitant]
     Indication: BLOOD CHOLESTEROL
  26. REVLIMID [Concomitant]
     Indication: PLASMA CELL MYELOMA
  27. DESONIDE [Concomitant]
     Indication: SEBORRHOEIC DERMATITIS
     Route: 061
  28. TESTOSTERONE [Concomitant]
     Dosage: 300 MG, QMO
  29. SYNTHROID [Concomitant]
  30. LOMOTIL [Concomitant]
     Indication: DIARRHOEA
     Dosage: 25 MG, QD
  31. GLUCOSAMINE [Concomitant]
  32. MULTIVITAMIN ^LAPPE^ [Concomitant]
  33. B-50 [Concomitant]
     Dosage: 1 DF, UNK
  34. VITAMIN E [Concomitant]
     Dosage: 1000 IU, QD
  35. FERROUS SULFATE [Concomitant]
  36. MOBIC [Concomitant]
  37. FOLIC ACID [Concomitant]
     Dosage: 800 UG, QD
  38. PROTONIX ^PHARMACIA^ [Concomitant]
  39. SEPTRA [Concomitant]
  40. LIPOFLAVONOID [Concomitant]
  41. VALTREX [Concomitant]
     Dosage: 500 MG, UNK
     Route: 048
  42. RANITIDINE [Concomitant]
     Dosage: 150 MG, UNK
     Route: 048
  43. SMZ-TMP [Concomitant]
     Dosage: 800.150 MG, UNK
     Route: 048
  44. ERYTHROPOIETIN [Concomitant]
     Dosage: 4000 U, QW
  45. BLOOD CELLS, PACKED HUMAN [Concomitant]
  46. INFLUENZA VACCINE [Concomitant]
  47. IRON [Concomitant]
  48. ALPHA LIPOIC ACID [Concomitant]
     Dosage: 300 MG, QD
  49. ACETYLCARNITINE [Concomitant]
  50. COMPAZINE [Concomitant]
  51. ALBUTEROL [Concomitant]
  52. AEROBID [Concomitant]
  53. PRINIVIL [Concomitant]
  54. CHONDROITIN A [Concomitant]
  55. CITRUCEL [Concomitant]
  56. CLINDAMYCIN [Concomitant]
  57. FISH OIL [Concomitant]
     Dosage: 1000 MG, DAILY
  58. KETOCONAZOLE [Concomitant]
  59. MOTRIN [Concomitant]
     Dosage: 800 MG, UNK

REACTIONS (125)
  - Influenza [Unknown]
  - Thrombotic thrombocytopenic purpura [Recovering/Resolving]
  - Platelet count decreased [Unknown]
  - Ventricular hypertrophy [Unknown]
  - Renal impairment [Recovering/Resolving]
  - Mental status changes [Recovering/Resolving]
  - Hallucination [Recovering/Resolving]
  - Osteonecrosis of jaw [Recovered/Resolved]
  - Bone disorder [Recovered/Resolved]
  - Toothache [Recovered/Resolved]
  - Soft tissue inflammation [Recovered/Resolved]
  - Gingival ulceration [Recovered/Resolved]
  - Wound dehiscence [Recovered/Resolved]
  - Loose tooth [Recovered/Resolved]
  - Gingival pain [Unknown]
  - X-ray abnormal [Unknown]
  - Oral pain [Unknown]
  - Plasma cell myeloma [Recovering/Resolving]
  - Squamous cell carcinoma of skin [Unknown]
  - Seborrhoeic dermatitis [Unknown]
  - Aortic valve incompetence [Unknown]
  - Aortic stenosis [Unknown]
  - Depression [Unknown]
  - Thrombocytopenia [Unknown]
  - Hypothyroidism [Unknown]
  - Haemorrhoids [Unknown]
  - Umbilical hernia [Unknown]
  - Gastrooesophageal reflux disease [Unknown]
  - Dyspnoea [Unknown]
  - Exostosis [Unknown]
  - Atrial tachycardia [Unknown]
  - Cardiac murmur [Unknown]
  - Hypercholesterolaemia [Unknown]
  - Diverticulitis [Unknown]
  - Fatigue [Unknown]
  - Barrett^s oesophagus [Unknown]
  - Chest pain [Unknown]
  - Dysgeusia [Unknown]
  - Hypoaesthesia [Unknown]
  - Paraesthesia [Unknown]
  - Gait disturbance [Unknown]
  - Tinnitus [Unknown]
  - Sinus congestion [Unknown]
  - Arthralgia [Unknown]
  - Myalgia [Unknown]
  - Pleural effusion [Unknown]
  - Atrioventricular block complete [Unknown]
  - Bradycardia [Unknown]
  - Chronic obstructive pulmonary disease [Unknown]
  - Osteoporosis [Unknown]
  - Osteopenia [Unknown]
  - Cardiomegaly [Unknown]
  - Atelectasis [Unknown]
  - Haematocrit abnormal [Recovering/Resolving]
  - Haemoglobin decreased [Unknown]
  - Muscle spasms [Unknown]
  - Anaemia [Unknown]
  - Visual acuity reduced [Unknown]
  - Vitreous floaters [Unknown]
  - Anxiety disorder [Unknown]
  - Macular hole [Unknown]
  - Retinal detachment [Unknown]
  - Choroidal detachment [Unknown]
  - Eye pain [Unknown]
  - Actinic elastosis [Unknown]
  - Actinic keratosis [Unknown]
  - Ocular hyperaemia [Unknown]
  - Eye swelling [Recovering/Resolving]
  - Skin infection [Recovered/Resolved]
  - Basal cell carcinoma [Unknown]
  - Melanocytic naevus [Unknown]
  - Dysplastic naevus [Unknown]
  - Swelling face [Unknown]
  - Skin fibrosis [Unknown]
  - Skin papilloma [Unknown]
  - Acrochordon [Unknown]
  - Dermal cyst [Unknown]
  - Intervertebral disc protrusion [Unknown]
  - Aortic arteriosclerosis [Unknown]
  - Nephrolithiasis [Unknown]
  - Osteoarthritis [Unknown]
  - Pulmonary granuloma [Unknown]
  - Gingival recession [Unknown]
  - Benign prostatic hyperplasia [Unknown]
  - Spinal osteoarthritis [Unknown]
  - Adjustment disorder with mixed anxiety and depressed mood [Unknown]
  - Swollen tongue [Unknown]
  - Venous insufficiency [Unknown]
  - Bone lesion [Unknown]
  - Bronchitis [Recovered/Resolved]
  - Neoplasm progression [Unknown]
  - Malignant neoplasm progression [Unknown]
  - Hypoglycaemia [Unknown]
  - Hyperglycaemia [Unknown]
  - Gingivitis [Unknown]
  - Neuropathy peripheral [Recovered/Resolved]
  - Oedema peripheral [Unknown]
  - Cardiac failure congestive [Unknown]
  - Lymphoma [Unknown]
  - Hypogonadism [Unknown]
  - Syncope [Unknown]
  - Coronary artery disease [Unknown]
  - Gastritis [Unknown]
  - Pneumonia [Unknown]
  - Lung infiltration [Unknown]
  - Retinopathy [Unknown]
  - Ventricular tachycardia [Unknown]
  - Peripheral vascular disorder [Unknown]
  - Diastolic dysfunction [Unknown]
  - Pulmonary hypertension [Unknown]
  - Pneumonia viral [Unknown]
  - Aortic valve sclerosis [Unknown]
  - Mitral valve sclerosis [Unknown]
  - Mitral valve incompetence [Unknown]
  - Tricuspid valve incompetence [Unknown]
  - Pericarditis [Unknown]
  - Pneumothorax [Unknown]
  - Aortic valve calcification [Unknown]
  - Limb injury [Unknown]
  - Skin lesion [Unknown]
  - Pain in extremity [Unknown]
  - Musculoskeletal discomfort [Unknown]
  - Asthenia [Unknown]
  - Headache [Unknown]
  - Rash [Unknown]
